FAERS Safety Report 14375688 (Version 1)
Quarter: 2018Q1

REPORT INFORMATION
  Report Type: Spontaneous
  Country: AT (occurrence: AT)
  Receive Date: 20180111
  Receipt Date: 20180111
  Transmission Date: 20180509
  Serious: Yes (Death)
  Sender: FDA-Public Use
  Company Number: AT-MYLANLABS-2018M1002005

PATIENT
  Age: 58 Year
  Sex: Female

DRUGS (8)
  1. PIXANTRONE [Suspect]
     Active Substance: PIXANTRONE
     Indication: T-CELL PROLYMPHOCYTIC LEUKAEMIA
     Route: 065
  2. VENETOCLAX. [Suspect]
     Active Substance: VENETOCLAX
     Indication: T-CELL PROLYMPHOCYTIC LEUKAEMIA
     Dosage: INITIAL DOSE : 20 MG ; STOPPED WHEN DOSE RAMP UP REACHEDE 400 MG
     Route: 065
  3. BENDAMUSTINE [Suspect]
     Active Substance: BENDAMUSTINE
     Indication: T-CELL PROLYMPHOCYTIC LEUKAEMIA
     Route: 065
  4. MITOXANTRONE [Suspect]
     Active Substance: MITOXANTRONE HYDROCHLORIDE
     Indication: T-CELL PROLYMPHOCYTIC LEUKAEMIA
     Route: 065
  5. ALEMTUZUMAB [Suspect]
     Active Substance: ALEMTUZUMAB
     Indication: T-CELL PROLYMPHOCYTIC LEUKAEMIA
     Route: 065
  6. ETOPOSIDE. [Suspect]
     Active Substance: ETOPOSIDE
     Indication: T-CELL PROLYMPHOCYTIC LEUKAEMIA
     Route: 065
  7. CYCLOPHOSPHAMIDE. [Suspect]
     Active Substance: CYCLOPHOSPHAMIDE
     Indication: T-CELL PROLYMPHOCYTIC LEUKAEMIA
     Route: 065
  8. FLUDARABINE [Suspect]
     Active Substance: FLUDARABINE PHOSPHATE
     Indication: T-CELL PROLYMPHOCYTIC LEUKAEMIA
     Route: 065

REACTIONS (2)
  - Off label use [Unknown]
  - Sepsis [Fatal]
